FAERS Safety Report 5794953-7 (Version None)
Quarter: 2008Q2

REPORT INFORMATION
  Report Type: 
  Country: None (occurrence: None)
  Receive Date: 20080627
  Receipt Date: 20080627
  Transmission Date: 20081010
  Serious: Yes (Life-Threatening)
  Sender: FDA-Public Use
  Company Number: None

PATIENT
  Age: 51 Year
  Sex: Male
  Weight: 113.3993 kg

DRUGS (1)
  1. REMICADE [Suspect]
     Indication: CROHN'S DISEASE
     Dosage: 13 VIALS EVERY 8 WEEKS IV DRIP
     Route: 041
     Dates: start: 20060710, end: 20080626

REACTIONS (2)
  - HERPES ZOSTER [None]
  - THROAT CANCER [None]
